FAERS Safety Report 6095364-X (Version None)
Quarter: 2009Q1

REPORT INFORMATION
  Report Type: 
  Country: None (occurrence: None)
  Receive Date: 20090227
  Receipt Date: 20080317
  Transmission Date: 20090719
  Serious: No
  Sender: FDA-Public Use
  Company Number: A0715805A

PATIENT
  Age: 27 Year
  Sex: Female

DRUGS (4)
  1. LAMICTAL [Suspect]
     Dosage: 50MG PER DAY
     Route: 048
  2. LISINOPRIL [Concomitant]
  3. CLARITIN [Concomitant]
  4. ORAL CONTRACEPTIVES [Concomitant]

REACTIONS (3)
  - DRUG DISPENSING ERROR [None]
  - EUPHORIC MOOD [None]
  - RASH [None]
